FAERS Safety Report 10016616 (Version 2)
Quarter: 2014Q1

REPORT INFORMATION
  Report Type: Spontaneous
  Country: CA (occurrence: CA)
  Receive Date: 20140317
  Receipt Date: 20140324
  Transmission Date: 20141002
  Serious: Yes (Other)
  Sender: FDA-Public Use
  Company Number: CA-PFIZER INC-2014068441

PATIENT
  Age: 46 Year
  Sex: Male
  Weight: 77 kg

DRUGS (5)
  1. BENEFIX [Suspect]
     Indication: FACTOR IX DEFICIENCY
     Dosage: UNK
     Route: 042
  2. BENEFIX [Suspect]
     Dosage: 6000 IU, UNK
     Route: 042
     Dates: start: 20140225, end: 20140225
  3. BENEFIX [Suspect]
     Dosage: 6300 IU, UNK
     Route: 042
     Dates: start: 20140306, end: 20140306
  4. BENEFIX [Suspect]
     Dosage: 6300 IU, UNK
     Route: 042
     Dates: start: 20140306, end: 20140306
  5. BENEFIX [Suspect]
     Dosage: 6300 IU, UNK
     Route: 042
     Dates: start: 20140307, end: 20140314

REACTIONS (2)
  - Incision site haemorrhage [Recovered/Resolved]
  - Incision site pain [Recovered/Resolved]
